FAERS Safety Report 20831775 (Version 1)
Quarter: 2022Q2

REPORT INFORMATION
  Report Type: Report from Study
  Country: US (occurrence: None)
  Receive Date: 20220516
  Receipt Date: 20220516
  Transmission Date: 20220721
  Serious: Yes (Hospitalization, Other)
  Sender: FDA-Public Use
  Company Number: US-ROCHE-2185787

PATIENT
  Age: 81 Year
  Sex: Female
  Weight: 55.3 kg

DRUGS (4)
  1. ATEZOLIZUMAB [Suspect]
     Active Substance: ATEZOLIZUMAB
     Indication: Colon cancer stage III
     Dosage: CYCLE = 14 DAYS, ON DAY 1?LAST DOSE ON 27/FEB/2018
     Route: 041
     Dates: start: 20171128
  2. FLUOROURACIL [Suspect]
     Active Substance: FLUOROURACIL
     Indication: Colon cancer stage III
     Dosage: ON DAY 1?LAST DOSE OF 5-FLUOROURACIL (3650 MG) ON 01/MAR/2018
     Route: 040
     Dates: start: 20171128
  3. LEUCOVORIN CALCIUM [Suspect]
     Active Substance: LEUCOVORIN CALCIUM
     Indication: Colon cancer stage III
     Dosage: OVER 2 HOURS ON DAY 1?LAST DOSE 652 MG ON 27/FEB/2018
     Route: 042
     Dates: start: 20171128
  4. OXALIPLATIN [Suspect]
     Active Substance: OXALIPLATIN
     Indication: Colon cancer stage III
     Dosage: OVER 2 HOURS ON DAY 1?LAST DOSE 106 MG ON 27/FEB/2018
     Route: 042
     Dates: start: 20171128

REACTIONS (7)
  - Pneumonia [Unknown]
  - Sinus tachycardia [Recovered/Resolved]
  - Fatigue [Unknown]
  - Hyperglycaemia [Recovered/Resolved]
  - Hyponatraemia [Recovered/Resolved]
  - Confusional state [Recovered/Resolved]
  - Syncope [Recovered/Resolved]

NARRATIVE: CASE EVENT DATE: 20171202
